FAERS Safety Report 9528825 (Version 1)
Quarter: 2013Q3

REPORT INFORMATION
  Report Type: Spontaneous
  Country: US (occurrence: US)
  Receive Date: 20130917
  Receipt Date: 20130917
  Transmission Date: 20140515
  Serious: No
  Sender: FDA-Public Use
  Company Number: US-TEVA-432969USA

PATIENT
  Age: 22 Year
  Sex: Female
  Weight: 67.19 kg

DRUGS (3)
  1. PLAN B ONE-STEP [Suspect]
     Indication: POST COITAL CONTRACEPTION
     Dosage: 1.5 MILLIGRAM DAILY;
     Route: 048
     Dates: start: 20130829, end: 20130829
  2. ADVIL [Concomitant]
     Indication: OROPHARYNGEAL PAIN
  3. AMOXICILLIN [Concomitant]
     Indication: VIRAL TEST

REACTIONS (2)
  - Vaginal discharge [Not Recovered/Not Resolved]
  - Menstruation irregular [Not Recovered/Not Resolved]
